FAERS Safety Report 21865601 (Version 1)
Quarter: 2023Q1

REPORT INFORMATION
  Report Type: Spontaneous
  Country: US (occurrence: None)
  Receive Date: 20230116
  Receipt Date: 20230116
  Transmission Date: 20230418
  Serious: Yes (Other)
  Sender: FDA-Public Use
  Company Number: US-MICRO LABS LIMITED-ML2023-00188

PATIENT
  Age: 31 Year
  Sex: Female

DRUGS (7)
  1. BUPROPION [Suspect]
     Active Substance: BUPROPION
     Indication: Bipolar II disorder
     Dosage: EXTENDED RELEASE AS AUGMENTATION THERAPY TO IMPROVE MOOD AND SEXUAL SIDE EFFECTS
  2. LURASIDONE [Suspect]
     Active Substance: LURASIDONE
     Indication: Bipolar II disorder
     Dosage: FOR MANIC-DEPRESSION
  3. LURASIDONE [Suspect]
     Active Substance: LURASIDONE
     Indication: Bipolar I disorder
  4. CLONAZEPAM [Concomitant]
     Active Substance: CLONAZEPAM
     Indication: Anxiety
     Dosage: AS AN ANXIOLYTIC
  5. LEVOTHYROXINE SODIUM [Concomitant]
     Active Substance: LEVOTHYROXINE SODIUM
  6. LIOTHYRONINE [Concomitant]
     Active Substance: LIOTHYRONINE
     Dosage: [ARMOR THYROID]
  7. LITHIUM [Concomitant]
     Active Substance: LITHIUM

REACTIONS (2)
  - Bipolar II disorder [Recovered/Resolved]
  - Exposure during pregnancy [Unknown]
